FAERS Safety Report 23274642 (Version 1)
Quarter: 2023Q4

REPORT INFORMATION
  Report Type: Report from Study
  Country: US (occurrence: US)
  Receive Date: 20231208
  Receipt Date: 20231208
  Transmission Date: 20240109
  Serious: Yes (Other)
  Sender: FDA-Public Use
  Company Number: US-JNJFOC-20231179390

PATIENT
  Age: 66 Year
  Sex: Male

DRUGS (2)
  1. APALUTAMIDE [Suspect]
     Active Substance: APALUTAMIDE
     Indication: Prostate cancer
     Route: 048
     Dates: end: 20231127
  2. APALUTAMIDE [Suspect]
     Active Substance: APALUTAMIDE
     Indication: Metastases to lung

REACTIONS (5)
  - Dizziness [Unknown]
  - Hot flush [Unknown]
  - Nausea [Unknown]
  - Memory impairment [Unknown]
  - Disturbance in attention [Unknown]
